FAERS Safety Report 7676612-9 (Version None)
Quarter: 2011Q3

REPORT INFORMATION
  Report Type: 
  Country: None (occurrence: None)
  Receive Date: 20110809
  Receipt Date: 20110809
  Transmission Date: 20111222
  Serious: No
  Sender: FDA-Public Use
  Company Number: None

PATIENT
  Sex: Female
  Weight: 84.369 kg

DRUGS (2)
  1. VENLAFAXINE [Suspect]
     Dosage: 75MG 1XDAILY O
     Route: 048
  2. VENLAFAXINE HCL [Suspect]
     Indication: DEPRESSION
     Dosage: 300MG 1XDAILY PO
     Route: 048
     Dates: start: 20110731, end: 20110803

REACTIONS (8)
  - FATIGUE [None]
  - DIARRHOEA [None]
  - PRODUCT SUBSTITUTION ISSUE [None]
  - DEPRESSION [None]
  - TREMOR [None]
  - WITHDRAWAL SYNDROME [None]
  - NAUSEA [None]
  - VOMITING [None]
